FAERS Safety Report 15219453 (Version 2)
Quarter: 2019Q1

REPORT INFORMATION
  Report Type: Spontaneous
  Country: US (occurrence: US)
  Receive Date: 20180731
  Receipt Date: 20190117
  Transmission Date: 20190417
  Serious: Yes (Death, Hospitalization)
  Sender: FDA-Public Use
  Company Number: US-SUN PHARMACEUTICAL INDUSTRIES LTD-2018US-179817

PATIENT
  Age: 82 Year
  Sex: Female

DRUGS (3)
  1. METHOTREXATE. [Suspect]
     Active Substance: METHOTREXATE
     Indication: RHEUMATOID ARTHRITIS
     Dosage: 7.5 MG, 1/WEEK, LOW-DOSE
     Route: 065
  2. METHOTREXATE. [Suspect]
     Active Substance: METHOTREXATE
     Dosage: 0.18 UMOL/L
     Route: 065
  3. METHOTREXATE. [Suspect]
     Active Substance: METHOTREXATE
     Dosage: 0.02 UMOL/L
     Route: 065

REACTIONS (8)
  - Septic shock [Fatal]
  - Pancytopenia [Fatal]
  - Neutropenia [Fatal]
  - Hypotension [Fatal]
  - Respiratory failure [Fatal]
  - Pneumonia [Fatal]
  - Acute kidney injury [Fatal]
  - Haematemesis [Fatal]
